FAERS Safety Report 4886886-5 (Version None)
Quarter: 2006Q1

REPORT INFORMATION
  Report Type: 
  Country: None (occurrence: None)
  Receive Date: 20060120
  Receipt Date: 20060112
  Transmission Date: 20060701
  Serious: Yes (Hospitalization)
  Sender: FDA-Public Use
  Company Number: FR-ABBOTT-06P-056-0321876-00

PATIENT
  Age: 46 Year
  Sex: Female

DRUGS (4)
  1. NORVIR [Suspect]
     Indication: HIV INFECTION
  2. NEVIRAPINE [Suspect]
     Indication: HIV INFECTION
     Route: 048
     Dates: start: 20051118, end: 20051128
  3. TIPRANAVIR [Concomitant]
     Indication: HIV INFECTION
  4. TINOFOVIR DISOPROXIL FUMARATE [Concomitant]
     Indication: HIV INFECTION

REACTIONS (4)
  - DERMATITIS EXFOLIATIVE [None]
  - PYREXIA [None]
  - RASH MORBILLIFORM [None]
  - TOXIC SKIN ERUPTION [None]
